FAERS Safety Report 8493001-8 (Version None)
Quarter: 2012Q3

REPORT INFORMATION
  Report Type: 
  Country: None (occurrence: None)
  Receive Date: 20120706
  Receipt Date: 20120627
  Transmission Date: 20120928
  Serious: Yes (Hospitalization)
  Sender: FDA-Public Use
  Company Number: US-ASTRAZENECA-2011SE48898

PATIENT
  Age: 54 Year
  Sex: Female
  Weight: 48.5 kg

DRUGS (7)
  1. SEROQUEL [Suspect]
     Route: 048
  2. VICODINE [Concomitant]
     Indication: PAIN
  3. NEURONTIN [Concomitant]
     Indication: FIBROMYALGIA
     Route: 048
  4. SEROQUEL [Suspect]
     Indication: BIPOLAR DISORDER
     Dosage: QD
     Route: 048
     Dates: start: 20100101, end: 20100101
  5. NORVASC [Concomitant]
     Indication: BLOOD PRESSURE
  6. CLONIPINE [Concomitant]
     Route: 048
  7. PLOMITIN [Concomitant]
     Indication: FIBROMYALGIA

REACTIONS (10)
  - HYPERTENSION [None]
  - SOMNOLENCE [None]
  - INSOMNIA [None]
  - IMPAIRED WORK ABILITY [None]
  - INTENTIONAL DRUG MISUSE [None]
  - LOSS OF CONSCIOUSNESS [None]
  - MALAISE [None]
  - DRUG DOSE OMISSION [None]
  - DISTURBANCE IN ATTENTION [None]
  - LETHARGY [None]
